FAERS Safety Report 5786222-6 (Version None)
Quarter: 2008Q2

REPORT INFORMATION
  Report Type: 
  Country: None (occurrence: None)
  Receive Date: 20080624
  Receipt Date: 20070731
  Transmission Date: 20081010
  Serious: No
  Sender: FDA-Public Use
  Company Number: US-ASTRAZENECA-2007UW18410

PATIENT
  Age: 78 Year
  Sex: Female

DRUGS (10)
  1. PULMICORT-100 [Suspect]
     Indication: ASTHMA
     Dosage: 2 PUFFS BID
     Route: 055
  2. SYNTHROID [Concomitant]
  3. VERAPAMIL [Concomitant]
  4. MICARDIS [Concomitant]
  5. FORADIL [Concomitant]
  6. SPIRIVA [Concomitant]
  7. XOPENEX [Concomitant]
  8. IMDUR [Concomitant]
  9. HYDROCHLOROTHIAZIDE [Concomitant]
  10. PRAVACHOL [Concomitant]

REACTIONS (1)
  - COUGH [None]
